FAERS Safety Report 10388859 (Version 1)
Quarter: 2014Q1

REPORT INFORMATION
  Report Type: Spontaneous
  Country: US (occurrence: None)
  Receive Date: 20140306
  Receipt Date: 20140306
  Transmission Date: 20141002
  Serious: Yes (Hospitalization)
  Sender: FDA-Public Use
  Company Number: 163-21880-13094560

PATIENT
  Age: 79 Year
  Sex: Female

DRUGS (4)
  1. REVLIMID (LENALIDOMIDE) (25 MILLIGRAM, CAPSULES) [Suspect]
     Indication: PLASMA CELL MYELOMA
     Route: 048
     Dates: start: 20110914
  2. HYDROXYZINE HCL [Concomitant]
  3. DICYCLOMINE HCL (DICYCLOVERINE HYDROCHLORIDE) [Concomitant]
  4. CARAFATE (SUCRALFATE) TABLET, 1G [Concomitant]

REACTIONS (1)
  - Irritable bowel syndrome [None]
